FAERS Safety Report 26024329 (Version 1)
Quarter: 2025Q4

REPORT INFORMATION
  Report Type: Report from Study
  Country: US (occurrence: US)
  Receive Date: 20251111
  Receipt Date: 20251111
  Transmission Date: 20260118
  Serious: Yes (Other)
  Sender: ABBVIE
  Company Number: US-ABBVIE-6534355

PATIENT
  Sex: Female

DRUGS (2)
  1. DURYSTA [Suspect]
     Active Substance: BIMATOPROST
     Indication: Intraocular pressure increased
     Dosage: TIME INTERVAL: AS NECESSARY: FORM STRENGTH: 10 MICROGRAM?INTRAOCULAR
     Route: 050
     Dates: start: 20251024, end: 20251024
  2. DURYSTA [Suspect]
     Active Substance: BIMATOPROST
     Indication: Open angle glaucoma

REACTIONS (2)
  - Endophthalmitis [Not Recovered/Not Resolved]
  - Eye irritation [Not Recovered/Not Resolved]

NARRATIVE: CASE EVENT DATE: 20251025
